FAERS Safety Report 21653060 (Version 1)
Quarter: 2022Q4

REPORT INFORMATION
  Report Type: Report from Study
  Country: CA (occurrence: CA)
  Receive Date: 20221128
  Receipt Date: 20221128
  Transmission Date: 20230113
  Serious: Yes (Other)
  Sender: FDA-Public Use
  Company Number: CA-GILEAD-2022-0585595

PATIENT
  Age: 73 Year
  Sex: Female

DRUGS (10)
  1. SACITUZUMAB GOVITECAN [Suspect]
     Active Substance: SACITUZUMAB GOVITECAN
     Indication: Triple negative breast cancer
     Dosage: 600 MG
     Route: 042
     Dates: start: 20220513
  2. SACITUZUMAB GOVITECAN [Suspect]
     Active Substance: SACITUZUMAB GOVITECAN
     Dosage: 600 MG C2D1 AND D8
     Route: 042
     Dates: start: 20220613, end: 20220620
  3. SACITUZUMAB GOVITECAN [Suspect]
     Active Substance: SACITUZUMAB GOVITECAN
     Dosage: 594 MG, C3D1
     Route: 042
     Dates: start: 20220704, end: 20220704
  4. SACITUZUMAB GOVITECAN [Suspect]
     Active Substance: SACITUZUMAB GOVITECAN
     Dosage: 445 MG, C4 D1
     Route: 042
     Dates: start: 20220726
  5. SACITUZUMAB GOVITECAN [Suspect]
     Active Substance: SACITUZUMAB GOVITECAN
     Dosage: 445 MG, D1 AND D8 (ONGOING)
     Route: 042
     Dates: start: 20220816, end: 20220823
  6. SACITUZUMAB GOVITECAN [Suspect]
     Active Substance: SACITUZUMAB GOVITECAN
     Dosage: 445 MG, D1 AND D8
     Route: 042
     Dates: start: 20220907, end: 20220913
  7. SACITUZUMAB GOVITECAN [Suspect]
     Active Substance: SACITUZUMAB GOVITECAN
     Dosage: UNK
     Route: 042
     Dates: start: 20221025, end: 20221025
  8. NERATINIB [Concomitant]
     Active Substance: NERATINIB
     Dosage: UNK
  9. PACLITAXEL [Concomitant]
     Active Substance: PACLITAXEL
  10. CARBOPLATIN\GEMCITABINE [Concomitant]
     Active Substance: CARBOPLATIN\GEMCITABINE

REACTIONS (6)
  - Disease progression [Unknown]
  - Febrile neutropenia [Unknown]
  - Weight fluctuation [Unknown]
  - Neutrophil count decreased [Not Recovered/Not Resolved]
  - Inappropriate schedule of product administration [Not Recovered/Not Resolved]
  - Inappropriate schedule of product administration [Recovered/Resolved]

NARRATIVE: CASE EVENT DATE: 20220907
